FAERS Safety Report 7217796-6 (Version None)
Quarter: 2011Q1

REPORT INFORMATION
  Report Type: 
  Country: None (occurrence: None)
  Receive Date: 20110110
  Receipt Date: 20110105
  Transmission Date: 20110831
  Serious: Yes (Disabling)
  Sender: FDA-Public Use
  Company Number: DE-JNJFOC-20110100998

PATIENT
  Age: 58 Year
  Sex: Female

DRUGS (1)
  1. TAVANIC [Suspect]
     Indication: URINARY TRACT INFECTION
     Route: 048

REACTIONS (6)
  - DEAFNESS NEUROSENSORY [None]
  - BALANCE DISORDER [None]
  - DISTURBANCE IN ATTENTION [None]
  - APHASIA [None]
  - TINNITUS [None]
  - DIZZINESS [None]
